FAERS Safety Report 7897405 (Version 3)
Quarter: 2013Q3

REPORT INFORMATION
  Report Type: Spontaneous
  Country: US (occurrence: US)
  Receive Date: 20110413
  Receipt Date: 20130809
  Transmission Date: 20140515
  Serious: Yes (Hospitalization, Other)
  Sender: FDA-Public Use
  Company Number: US-ROCHE-769596

PATIENT
  Age: 23 Year
  Sex: Female
  Weight: 56.7 kg

DRUGS (1)
  1. ACCUTANE [Suspect]
     Indication: ACNE CYSTIC
     Route: 065
     Dates: start: 19980223, end: 19980608

REACTIONS (5)
  - Colitis ulcerative [Unknown]
  - Proctitis [Unknown]
  - Inflammatory bowel disease [Unknown]
  - Colectomy [Unknown]
  - Intestinal obstruction [Unknown]
